FAERS Safety Report 10177940 (Version 1)
Quarter: 2014Q2

REPORT INFORMATION
  Report Type: Report from Study
  Country: AR (occurrence: AR)
  Receive Date: 20140516
  Receipt Date: 20140516
  Transmission Date: 20141212
  Serious: Yes (Death, Hospitalization, Other)
  Sender: FDA-Public Use
  Company Number: PHHY2014AR059649

PATIENT
  Age: 67 Year
  Sex: Male

DRUGS (2)
  1. DIOVAN [Suspect]
     Indication: HYPERTENSION
     Dosage: 1TABLET (320 MG), DAILY
     Route: 048
     Dates: start: 2006
  2. DRUG THERAPY NOS [Concomitant]
     Indication: PANCREATIC NEOPLASM
     Dosage: UNK

REACTIONS (5)
  - Pancreatic neoplasm [Fatal]
  - General physical health deterioration [Unknown]
  - Malaise [Unknown]
  - Abdominal pain upper [Unknown]
  - Blood pressure increased [Unknown]
